FAERS Safety Report 5724700-6 (Version None)
Quarter: 2008Q2

REPORT INFORMATION
  Report Type: 
  Country: None (occurrence: None)
  Receive Date: 20080428
  Receipt Date: 20080219
  Transmission Date: 20081010
  Serious: Yes (Other)
  Sender: FDA-Public Use
  Company Number: CAP08000061

PATIENT
  Age: 79 Year
  Sex: Female

DRUGS (1)
  1. DIDROCAL(ETIDRONATE DISODIUM/CALCIUM CARBONATE CYCLICAL) TABLET, 400/1 [Suspect]
     Indication: OSTEOPOROSIS
     Dosage: 1 TABLET DAILY, ORAL
     Route: 048
     Dates: start: 20060101

REACTIONS (11)
  - DYSGEUSIA [None]
  - GINGIVAL DISCOLOURATION [None]
  - GINGIVAL DISORDER [None]
  - GINGIVAL PAIN [None]
  - GINGIVITIS [None]
  - IMPAIRED HEALING [None]
  - LOOSE TOOTH [None]
  - SENSORY DISTURBANCE [None]
  - SKIN EXFOLIATION [None]
  - TEETH BRITTLE [None]
  - TONGUE DISORDER [None]
